FAERS Safety Report 9262341 (Version 1)
Quarter: 2013Q2

REPORT INFORMATION
  Report Type: Spontaneous
  Country: TR (occurrence: TR)
  Receive Date: 20130430
  Receipt Date: 20130430
  Transmission Date: 20140414
  Serious: Yes (Other)
  Sender: FDA-Public Use
  Company Number: PHHY2013TR039252

PATIENT
  Age: 60 Year
  Sex: Female

DRUGS (1)
  1. ZOLEDRONIC ACID [Suspect]
     Dosage: UNK UKN, MONTHLY INTERVALS

REACTIONS (4)
  - Osteonecrosis of jaw [Unknown]
  - Dental discomfort [Unknown]
  - Toothache [Unknown]
  - Exposed bone in jaw [Unknown]
